FAERS Safety Report 4269654-7 (Version None)
Quarter: 2004Q1

REPORT INFORMATION
  Report Type: 
  Country: None (occurrence: None)
  Receive Date: 20040112
  Receipt Date: 20040105
  Transmission Date: 20041129
  Serious: Yes (Other)
  Sender: FDA-Public Use
  Company Number: 2003-09-0138

PATIENT
  Age: 64 Year
  Sex: Female

DRUGS (2)
  1. GARAMYCIN [Suspect]
     Indication: HIP ARTHROPLASTY
     Dosage: IMPLANT
     Dates: start: 19980101
  2. GARAMYCIN [Suspect]
     Indication: HIP ARTHROPLASTY
     Dosage: IMPLANT
     Dates: start: 19990101

REACTIONS (1)
  - DERMATITIS ALLERGIC [None]
